FAERS Safety Report 10049761 (Version 5)
Quarter: 2014Q2

REPORT INFORMATION
  Report Type: Spontaneous
  Country: JP (occurrence: JP)
  Receive Date: 20140401
  Receipt Date: 20140527
  Transmission Date: 20141212
  Serious: Yes (Death, Hospitalization, Other)
  Sender: FDA-Public Use
  Company Number: JP-TEVA-471099ISR

PATIENT
  Age: 90 Year
  Sex: Female
  Weight: 39 kg

DRUGS (17)
  1. DONEPEZIL HYDROCHLORIDE TABLET ^TAIYO^ , TAB [Suspect]
     Indication: DEMENTIA
     Dosage: 5 MILLIGRAM DAILY;
     Route: 048
     Dates: end: 20131004
  2. DONEPEZIL HYDROCHLORIDE TABLET ^TAIYO^ , TAB [Suspect]
     Dosage: 5 MILLIGRAM DAILY; AFTER BREAKFEST.
     Route: 048
     Dates: start: 20140131, end: 20140201
  3. SPIRONOLACTONE [Concomitant]
     Indication: HYPERTENSION
     Dosage: 25 MILLIGRAM DAILY;
     Route: 048
     Dates: start: 20130903
  4. DIAZEPAM [Concomitant]
     Indication: ANXIETY
     Dosage: 10 MILLIGRAM DAILY;
     Route: 048
     Dates: start: 20130903
  5. DIAZEPAM [Concomitant]
     Indication: TENSION
  6. DIAZEPAM [Concomitant]
     Indication: DEPRESSION
  7. GASPORT-D [Concomitant]
     Indication: PROPHYLAXIS AGAINST GASTROINTESTINAL ULCER
     Dosage: 20 MILLIGRAM DAILY;
     Route: 048
  8. PROPIVERINE HYDROCHLORIDE [Concomitant]
     Dosage: 10 MILLIGRAM DAILY;
     Route: 048
  9. MAGMITT TAB.330MG [Concomitant]
     Dosage: 660 MILLIGRAM DAILY;
     Route: 048
  10. YOKUKAKUSAN EXTRACT GRANULES [Concomitant]
     Indication: NEUROSIS
     Route: 048
     Dates: start: 20130918
  11. ARICEPT D [Concomitant]
     Dosage: 5 MILLIGRAM DAILY;
     Route: 048
     Dates: start: 20140108, end: 20140108
  12. SERENACE [Concomitant]
     Indication: HALLUCINATION
     Dosage: 1.5 MILLIGRAM DAILY;
     Route: 048
     Dates: start: 20140108
  13. SERENACE [Concomitant]
     Indication: DELUSION
  14. RISPERDAL [Concomitant]
     Indication: HALLUCINATION
     Dosage: 1 MILLIGRAM DAILY;
     Route: 048
     Dates: start: 20140108
  15. RISPERDAL [Concomitant]
     Indication: DELUSION
  16. TOSUFLOXACIN TOSILATE [Concomitant]
     Indication: PYELONEPHRITIS
     Route: 048
  17. BAKTAR [Concomitant]
     Indication: PYELONEPHRITIS
     Route: 048

REACTIONS (11)
  - Sudden death [Fatal]
  - Respiratory arrest [Fatal]
  - Cardiac arrest [Fatal]
  - Poriomania [Unknown]
  - Restlessness [Unknown]
  - Fall [Unknown]
  - Femur fracture [Recovering/Resolving]
  - Sternal fracture [Recovering/Resolving]
  - Pyelonephritis [Recovering/Resolving]
  - Osteoporosis [Unknown]
  - Drug ineffective [Unknown]
